FAERS Safety Report 6041770-9 (Version None)
Quarter: 2009Q1

REPORT INFORMATION
  Report Type: 
  Country: None (occurrence: None)
  Receive Date: 20090116
  Receipt Date: 20090103
  Transmission Date: 20090719
  Serious: Yes (Hospitalization, Disabling, Other)
  Sender: FDA-Public Use
  Company Number: US-PFIZER INC-2008100500

PATIENT
  Sex: Male
  Weight: 81.818 kg

DRUGS (3)
  1. NEURONTIN [Suspect]
     Indication: NEURALGIA
     Dates: end: 20080401
  2. NEURONTIN [Suspect]
     Indication: NEUROPATHY PERIPHERAL
  3. ALCOHOL [Suspect]
     Indication: PAIN
     Dates: end: 20080401

REACTIONS (10)
  - ALCOHOL WITHDRAWAL SYNDROME [None]
  - ANXIETY [None]
  - CARDIAC FAILURE CONGESTIVE [None]
  - COMA [None]
  - DEMENTIA ALZHEIMER'S TYPE [None]
  - DRUG WITHDRAWAL SYNDROME [None]
  - GAIT DISTURBANCE [None]
  - MUSCLE ATROPHY [None]
  - NEURALGIA [None]
  - WEIGHT DECREASED [None]
